FAERS Safety Report 9128201 (Version 2)
Quarter: 2013Q2

REPORT INFORMATION
  Report Type: Spontaneous
  Country: GB (occurrence: GB)
  Receive Date: 20130228
  Receipt Date: 20130619
  Transmission Date: 20140414
  Serious: Yes (Other)
  Sender: FDA-Public Use
  Company Number: GB-AMGEN-GBRSP2013012905

PATIENT
  Sex: Female
  Weight: 57.5 kg

DRUGS (3)
  1. PROLIA [Suspect]
     Indication: OSTEOPOROSIS
     Dosage: UNK UNK, Q6MO
     Route: 058
     Dates: start: 20110329
  2. PREDNISOLONE [Concomitant]
  3. CALCIUM + VITAMIN D [Concomitant]

REACTIONS (2)
  - Reynold^s syndrome [Unknown]
  - Vasospasm [Unknown]
